FAERS Safety Report 7357324-8 (Version None)
Quarter: 2011Q1

REPORT INFORMATION
  Report Type: 
  Country: None (occurrence: None)
  Receive Date: 20110317
  Receipt Date: 20110314
  Transmission Date: 20110831
  Serious: Yes (Other)
  Sender: FDA-Public Use
  Company Number: US-ABBOTT-11P-163-0711282-00

PATIENT
  Sex: Female
  Weight: 68.1 kg

DRUGS (9)
  1. FENTANYL-100 [Concomitant]
     Indication: PRODUCT USED FOR UNKNOWN INDICATION
     Route: 061
  2. TRAMADOL [Concomitant]
     Indication: PAIN
     Dosage: 1-2 TID AS NEEDED
     Route: 048
  3. CLONAZEPAM [Concomitant]
     Indication: PRODUCT USED FOR UNKNOWN INDICATION
  4. HUMIRA [Suspect]
     Indication: RHEUMATOID ARTHRITIS
     Route: 058
     Dates: start: 20090101
  5. LYRICA [Concomitant]
     Indication: PRODUCT USED FOR UNKNOWN INDICATION
     Route: 048
  6. TRAZODONE [Concomitant]
     Indication: INSOMNIA
     Route: 048
  7. CELEXA [Concomitant]
     Indication: PRODUCT USED FOR UNKNOWN INDICATION
     Dosage: UNREPORTED STRENGTH 1.5 TABS
     Route: 048
  8. TIZANIDINE HCL [Concomitant]
     Indication: MUSCLE SPASMS
  9. PHENERGAN [Concomitant]
     Indication: NAUSEA

REACTIONS (10)
  - CANDIDIASIS [None]
  - INTERVERTEBRAL DISC PROTRUSION [None]
  - ARTHRALGIA [None]
  - OROPHARYNGEAL PAIN [None]
  - BACK PAIN [None]
  - ANKLE FRACTURE [None]
  - JOINT SPRAIN [None]
  - FALL [None]
  - LOWER RESPIRATORY TRACT INFECTION [None]
  - COUGH [None]
